FAERS Safety Report 21021873 (Version 1)
Quarter: 2022Q2

REPORT INFORMATION
  Report Type: Spontaneous
  Country: KR (occurrence: KR)
  Receive Date: 20220629
  Receipt Date: 20220629
  Transmission Date: 20220721
  Serious: Yes (Other)
  Sender: FDA-Public Use
  Company Number: KR-BPIPOOL-BPILit36779

PATIENT
  Age: 35 Year
  Sex: Female

DRUGS (2)
  1. OXALIPLATIN [Suspect]
     Active Substance: OXALIPLATIN
     Indication: Rectal cancer
     Dosage: 85 MILLIGRAM/SQ. METER, 1DOSE/1CYCLIC
     Route: 065
  2. FLUOROURACIL [Concomitant]
     Active Substance: FLUOROURACIL
     Indication: Rectal cancer
     Dosage: 400 MG/M^2 + 600 MG/M^2 ON DAY 1 AND 2
     Route: 065

REACTIONS (3)
  - Varices oesophageal [Unknown]
  - Splenomegaly [Unknown]
  - Portal hypertension [Unknown]
